FAERS Safety Report 9496068 (Version 1)
Quarter: 2013Q3

REPORT INFORMATION
  Report Type: Spontaneous
  Country: US (occurrence: US)
  Receive Date: 20130904
  Receipt Date: 20130904
  Transmission Date: 20140515
  Serious: No
  Sender: FDA-Public Use
  Company Number: US-BIOGENIDEC-2013BI082542

PATIENT
  Sex: Female

DRUGS (11)
  1. AVONEX [Suspect]
     Indication: MULTIPLE SCLEROSIS
     Route: 030
     Dates: start: 20110404
  2. ALPRAZOLAM [Concomitant]
  3. BACLOFEN [Concomitant]
  4. CLARITIN [Concomitant]
  5. EFFEXOR [Concomitant]
  6. ESTRADIOL [Concomitant]
  7. FLAGYL [Concomitant]
  8. FLONASE [Concomitant]
  9. HYDROCODONE-ACETAMINOPHEN [Concomitant]
  10. LASIX [Concomitant]
  11. LEVOTHYROXINE SODIUM [Concomitant]

REACTIONS (1)
  - Influenza [Unknown]
